FAERS Safety Report 22400802 (Version 14)
Quarter: 2025Q1

REPORT INFORMATION
  Report Type: Spontaneous
  Country: US (occurrence: US)
  Receive Date: 20230602
  Receipt Date: 20250109
  Transmission Date: 20250409
  Serious: Yes (Other)
  Sender: PFIZER
  Company Number: US-PFIZER INC-PV202300097437

PATIENT
  Age: 79 Year
  Sex: Female
  Weight: 58.05 kg

DRUGS (10)
  1. IBRANCE [Suspect]
     Active Substance: PALBOCICLIB
     Indication: Breast cancer metastatic
  2. IBRANCE [Suspect]
     Active Substance: PALBOCICLIB
  3. IBRANCE [Suspect]
     Active Substance: PALBOCICLIB
  4. IBRANCE [Suspect]
     Active Substance: PALBOCICLIB
     Dosage: 75 MG, 1X/DAY
  5. IBRANCE [Suspect]
     Active Substance: PALBOCICLIB
     Dosage: 75 MG, 1X/DAY
     Route: 048
     Dates: start: 202303
  6. IBRANCE [Suspect]
     Active Substance: PALBOCICLIB
  7. IBRANCE [Suspect]
     Active Substance: PALBOCICLIB
     Dates: start: 20230510
  8. IBRANCE [Suspect]
     Active Substance: PALBOCICLIB
  9. LETROZOLE [Concomitant]
     Active Substance: LETROZOLE
     Indication: Breast cancer metastatic
  10. METOPROLOL [Concomitant]
     Active Substance: METOPROLOL
     Indication: Blood pressure abnormal

REACTIONS (9)
  - White blood cell count decreased [Recovered/Resolved]
  - Localised infection [Recovered/Resolved]
  - Memory impairment [Unknown]
  - Infection [Recovered/Resolved]
  - Full blood count decreased [Not Recovered/Not Resolved]
  - Off label use [Unknown]
  - Product use issue [Unknown]
  - Product storage error [Unknown]
  - Poor quality product administered [Unknown]

NARRATIVE: CASE EVENT DATE: 20240108
